FAERS Safety Report 13436189 (Version 2)
Quarter: 2017Q2

REPORT INFORMATION
  Report Type: Report from Study
  Country: JP (occurrence: JP)
  Receive Date: 20170413
  Receipt Date: 20170529
  Transmission Date: 20170830
  Serious: Yes (Life-Threatening, Hospitalization, Other)
  Sender: FDA-Public Use
  Company Number: JP-ACTELION-A-CH2017-152286

PATIENT
  Age: 18 Year
  Sex: Female
  Weight: 47.2 kg

DRUGS (11)
  1. TREPROST [Concomitant]
     Active Substance: TREPROSTINIL
  2. EPOPROSTENOL ACT [Suspect]
     Active Substance: EPOPROSTENOL
     Indication: PULMONARY ARTERIAL HYPERTENSION
     Dosage: 40 NG/KG, PER MIN
     Route: 042
     Dates: start: 20130625, end: 20160805
  3. LASIX [Concomitant]
     Active Substance: FUROSEMIDE
  4. ALLELOCK [Concomitant]
     Active Substance: OLOPATADINE HYDROCHLORIDE
  5. MIYA-BM [Concomitant]
     Active Substance: CLOSTRIDIUM BUTYRICUM SPORES STRAIN M-55
  6. SLOW-K [Concomitant]
     Active Substance: POTASSIUM CHLORIDE
  7. GASTER [Concomitant]
     Active Substance: FAMOTIDINE
  8. PHELLOBERIN [Concomitant]
     Active Substance: BERBERINE\GERANIUM
  9. OPSUMIT [Suspect]
     Active Substance: MACITENTAN
     Indication: PULMONARY ARTERIAL HYPERTENSION
     Dosage: 10 MG, QD
     Route: 048
     Dates: start: 20151022
  10. ADCIRCA [Concomitant]
     Active Substance: TADALAFIL
  11. LOPEMIN [Concomitant]
     Active Substance: LOPERAMIDE HYDROCHLORIDE

REACTIONS (9)
  - Pulmonary alveolar haemorrhage [Recovered/Resolved]
  - Hyperthyroidism [Recovered/Resolved]
  - Catheter placement [Unknown]
  - Platelet transfusion [Unknown]
  - Catheter removal [Unknown]
  - Haemoptysis [Recovering/Resolving]
  - Device related infection [Recovered/Resolved]
  - Platelet count decreased [Recovered/Resolved]
  - Pneumonia [Recovered/Resolved]

NARRATIVE: CASE EVENT DATE: 20160226
